FAERS Safety Report 4475051-1 (Version None)
Quarter: 2004Q3

REPORT INFORMATION
  Report Type: 
  Country: None (occurrence: None)
  Receive Date: 20040923
  Receipt Date: 20040809
  Transmission Date: 20050211
  Serious: No
  Sender: FDA-Public Use
  Company Number: USA040874990

PATIENT
  Age: 83 Year
  Sex: Female

DRUGS (7)
  1. FORTEO [Suspect]
     Indication: OSTEOPOROSIS
     Dates: start: 20040701
  2. CALCIUM [Concomitant]
  3. ACTONEL [Concomitant]
  4. PREDNISONE [Concomitant]
  5. METHOTREXATE [Concomitant]
  6. SYNTHROID [Concomitant]
  7. BEXTRA [Concomitant]

REACTIONS (3)
  - ARTHRITIS [None]
  - ASTHENIA [None]
  - TREMOR [None]
